FAERS Safety Report 10937806 (Version 2)
Quarter: 2015Q2

REPORT INFORMATION
  Report Type: Spontaneous
  Country: US (occurrence: US)
  Receive Date: 20150321
  Receipt Date: 20150525
  Transmission Date: 20150821
  Serious: No
  Sender: FDA-Public Use
  Company Number: US-JNJFOC-20120614001

PATIENT
  Age: 60 Year
  Sex: Female
  Weight: 97.07 kg

DRUGS (6)
  1. STELARA [Suspect]
     Active Substance: USTEKINUMAB
     Indication: PSORIATIC ARTHROPATHY
     Dosage: FOR 6 MONTHS
     Route: 058
  2. STELARA [Suspect]
     Active Substance: USTEKINUMAB
     Indication: PSORIASIS
     Dosage: INITIAL, FOLLOWED BY A DOSE IN 4 WEEKS THEN EVERY 12 WEEKS, FOR 6 MONTHS
     Route: 058
     Dates: start: 20091026
  3. STELARA [Suspect]
     Active Substance: USTEKINUMAB
     Indication: PSORIATIC ARTHROPATHY
     Dosage: INITIAL, FOLLOWED BY A DOSE IN 4 WEEKS THEN EVERY 12 WEEKS, FOR 6 MONTHS
     Route: 058
     Dates: start: 20091026
  4. STELARA [Suspect]
     Active Substance: USTEKINUMAB
     Indication: PSORIASIS
     Route: 058
  5. STELARA [Suspect]
     Active Substance: USTEKINUMAB
     Indication: PSORIATIC ARTHROPATHY
     Route: 058
  6. STELARA [Suspect]
     Active Substance: USTEKINUMAB
     Indication: PSORIASIS
     Dosage: FOR 6 MONTHS
     Route: 058

REACTIONS (2)
  - Product use issue [Not Recovered/Not Resolved]
  - Condition aggravated [Recovered/Resolved]
